FAERS Safety Report 8950582 (Version 1)
Quarter: 2012Q4

REPORT INFORMATION
  Report Type: Spontaneous
  Country: GB (occurrence: None)
  Receive Date: 20121128
  Receipt Date: 20121128
  Transmission Date: 20130627
  Serious: Yes (Hospitalization)
  Sender: FDA-Public Use
  Company Number: AUR-APL-2012-04919

PATIENT
  Age: 62 Year
  Sex: Male

DRUGS (4)
  1. SERTRALINE (SERTRALINE) (SERTRALINE) [Suspect]
     Indication: DEPRESSION
     Route: 048
     Dates: start: 201210, end: 20121102
  2. BENDROFLUMETHIAZIDE [Suspect]
     Indication: HYPERTENSION
     Route: 048
  3. ATENOLOL [Suspect]
     Indication: HYPERTENSION
     Dosage: (25 mg,2 in 1 D)
     Route: 048
  4. ENALAPRIL [Suspect]
     Indication: HYPERTENSION
     Route: 048

REACTIONS (3)
  - Inappropriate antidiuretic hormone secretion [None]
  - Confusional state [None]
  - Lethargy [None]
